FAERS Safety Report 8827959 (Version 2)
Quarter: 2014Q2

REPORT INFORMATION
  Report Type: Spontaneous
  Country: US (occurrence: US)
  Receive Date: 20121005
  Receipt Date: 20131024
  Transmission Date: 20141212
  Serious: No
  Sender: FDA-Public Use
  Company Number: US-PFIZER INC-2012174186

PATIENT
  Age: 58 Year
  Sex: Female
  Weight: 78.01 kg

DRUGS (2)
  1. ENBREL [Suspect]
     Indication: RHEUMATOID ARTHRITIS
     Dosage: 50 MG, QWK
     Route: 058
     Dates: start: 20120214
  2. METHOTREXATE SODIUM [Suspect]
     Dosage: 1 MG, UNK
     Dates: start: 201107

REACTIONS (6)
  - Neuropathy peripheral [Not Recovered/Not Resolved]
  - Drug effect incomplete [Not Recovered/Not Resolved]
  - Photosensitivity reaction [Not Recovered/Not Resolved]
  - Malaise [Not Recovered/Not Resolved]
  - Urticaria [Not Recovered/Not Resolved]
  - Rash erythematous [Not Recovered/Not Resolved]
